FAERS Safety Report 8968090 (Version 2)
Quarter: 2013Q1

REPORT INFORMATION
  Report Type: Spontaneous
  Country: US (occurrence: None)
  Receive Date: 20121207
  Receipt Date: 20121219
  Transmission Date: 20140127
  Serious: Yes (Hospitalization, Other)
  Sender: FDA-Public Use
  Company Number: ACO_33163_2012

PATIENT
  Age: 52 Year
  Sex: Female

DRUGS (5)
  1. AMPYRA (DALFAMPRIDINE) TABLET, 10MG [Suspect]
     Indication: PRODUCT USED FOR UNKNOWN INDICATION
     Dates: start: 2010
  2. TRAMADOL (TRAMADOL HYDROCHLORIDE) [Suspect]
     Indication: ARTHRALGIA
     Dates: start: 201203, end: 2012
  3. BUPROPION HYDROCHLORIDE (BUPROPION HYDROCHLORIDE) (BUPROPION HYDROCHLORIDE) [Concomitant]
  4. CYMBALTA (DULOXETINE HYDROCHLORIDE) [Concomitant]
  5. TEGRETOL (CARBAMAZEPINE) UNKNOWN [Concomitant]

REACTIONS (7)
  - Convulsion [None]
  - Hallucination [None]
  - Arthralgia [None]
  - Fall [None]
  - Muscle tightness [None]
  - Memory impairment [None]
  - Loss of consciousness [None]
